FAERS Safety Report 9319643 (Version 1)
Quarter: 2013Q1

REPORT INFORMATION
  Report Type: Spontaneous
  Country: DE (occurrence: None)
  Receive Date: 20121128
  Receipt Date: 20121128
  Transmission Date: 20140127
  Serious: Yes (Hospitalization)
  Sender: FDA-Public Use
  Company Number: 2012033999

PATIENT
  Age: 27 Year
  Sex: Female

DRUGS (4)
  1. BERINERT [Suspect]
     Indication: HEREDITARY ANGIOEDEMA
     Route: 058
     Dates: start: 20121112
  2. CSL830 (COMPLEMENT C1 ESTERASE INHIBITOR) [Suspect]
     Indication: HEREDITARY ANGIOEDEMA
     Route: 058
     Dates: start: 20121112, end: 20121112
  3. PAROXETINE HYDROCHLORIDE [Concomitant]
  4. AZITHROMYCIN (AZITHROMYCIN) [Concomitant]

REACTIONS (3)
  - Circulatory collapse [None]
  - Dizziness [None]
  - Nausea [None]
